FAERS Safety Report 23574180 (Version 1)
Quarter: 2024Q1

REPORT INFORMATION
  Report Type: Report from Study
  Country: US (occurrence: US)
  Receive Date: 20240228
  Receipt Date: 20240228
  Transmission Date: 20240410
  Serious: Yes (Other)
  Sender: FDA-Public Use
  Company Number: US-HORIZON THERAPEUTICS-HZN-2024-002274

PATIENT

DRUGS (1)
  1. PROCYSBI [Suspect]
     Active Substance: CYSTEAMINE BITARTRATE
     Indication: Product used for unknown indication
     Dosage: 1200 MG, BID (16 X 75 MG CAPSULES)
     Route: 065

REACTIONS (2)
  - Peripheral nerve injury [Unknown]
  - Alopecia [Unknown]
